FAERS Safety Report 9700253 (Version 1)
Quarter: 2013Q4

REPORT INFORMATION
  Report Type: Spontaneous
  Country: GB (occurrence: None)
  Receive Date: 20131119
  Receipt Date: 20131119
  Transmission Date: 20140711
  Serious: Yes (Hospitalization, Other)
  Sender: FDA-Public Use
  Company Number: AUR-APL-2013-09543

PATIENT
  Age: 88 Year
  Sex: Male

DRUGS (12)
  1. CIPROFLOXACIN (CIPROFLOXACIN) [Suspect]
     Indication: INFECTION
     Route: 048
  2. CALCEOS (LEKOVITCA) [Concomitant]
  3. CLOPIDOGREL (CLIPODOGREL) [Concomitant]
  4. ENOXAPARIN (ENOXAPARIN) [Concomitant]
  5. PARACETAMOL (PARACETAMOL) [Concomitant]
  6. SENNA (SENNA ALEXANDRINA) [Concomitant]
  7. SIMVASTATIN (SIMVASTATIN) [Concomitant]
  8. TAMSULOSIN (TAMSULOSIN) [Concomitant]
  9. THIAMINE (THIAMINE) [Concomitant]
  10. CALCEOS (LEKOVITCA) [Concomitant]
  11. C;OPIDOGREL (CLOPIDOGREL) [Concomitant]
  12. ENOXAPARIN (ENOXAPARIN) [Concomitant]

REACTIONS (2)
  - Epilepsy [None]
  - Tonic convulsion [None]
